FAERS Safety Report 15299103 (Version 1)
Quarter: 2018Q3

REPORT INFORMATION
  Report Type: Spontaneous
  Country: HK (occurrence: HK)
  Receive Date: 20180821
  Receipt Date: 20180821
  Transmission Date: 20181010
  Serious: Yes (Life-Threatening, Hospitalization, Other)
  Sender: FDA-Public Use
  Company Number: HK-ACCORD-070773

PATIENT
  Age: 49 Year
  Sex: Female

DRUGS (5)
  1. OXALIPLATIN. [Concomitant]
     Active Substance: OXALIPLATIN
     Indication: COLON CANCER STAGE III
     Dosage: DAY 1, FOR EIGHT CYCLES, FOLFOX: 85 MG/M2 AT DAY 1
     Dates: start: 20161024, end: 201707
  2. CAPECITABINE. [Suspect]
     Active Substance: CAPECITABINE
     Indication: COLON CANCER STAGE III
     Dosage: 1000 MG/M2 TWICE DAILY FOR 14 DAYS
     Route: 048
     Dates: start: 20161024, end: 20161106
  3. PIPERACILLIN SODIUM/TAZOBACTAM SODIUM [Concomitant]
  4. FLUOROURACIL. [Suspect]
     Active Substance: FLUOROURACIL
     Indication: COLON CANCER STAGE III
     Dosage: 600 MG/M2 IV INFUSION AT 22 H AT DAY 1 AND 2
     Route: 040
     Dates: start: 20170104, end: 201707
  5. FOLINIC ACID [Concomitant]
     Active Substance: LEUCOVORIN
     Indication: COLON CANCER STAGE III
     Dosage: 200 MG/M2 AT DAY 1 AND 2
     Dates: start: 20170104, end: 201707

REACTIONS (5)
  - Diarrhoea [Unknown]
  - Neutropenia [Recovered/Resolved]
  - Bone marrow toxicity [Unknown]
  - Febrile neutropenia [Unknown]
  - Bone marrow failure [Unknown]

NARRATIVE: CASE EVENT DATE: 20161105
